FAERS Safety Report 5390134-X (Version None)
Quarter: 2007Q3

REPORT INFORMATION
  Report Type: 
  Country: None (occurrence: None)
  Receive Date: 20070716
  Receipt Date: 20070716
  Transmission Date: 20080115
  Serious: No
  Sender: FDA-Public Use
  Company Number: None

PATIENT
  Age: 56 Year
  Sex: Female
  Weight: 118.8 kg

DRUGS (1)
  1. AMITIZA [Suspect]
     Indication: CONSTIPATION
     Dosage: 24 MCG  DAILY  PO
     Route: 048
     Dates: start: 20070614, end: 20070707

REACTIONS (2)
  - HYPERGLYCAEMIA [None]
  - NAUSEA [None]
